FAERS Safety Report 17197562 (Version 1)
Quarter: 2019Q4

REPORT INFORMATION
  Report Type: Spontaneous
  Country: PT (occurrence: PT)
  Receive Date: 20191224
  Receipt Date: 20191224
  Transmission Date: 20200122
  Serious: Yes (Death, Hospitalization, Other)
  Sender: FDA-Public Use
  Company Number: PT-BAUSCH-BL-2019-065727

PATIENT
  Age: 60 Year
  Sex: Male
  Weight: 50 kg

DRUGS (5)
  1. HARVONI [Interacting]
     Active Substance: LEDIPASVIR\SOFOSBUVIR
     Indication: HEPATITIS C
     Route: 065
     Dates: start: 20170330, end: 20170601
  2. PRAVASTATINE (PRAVASTATIN SODIUM) [Concomitant]
     Indication: DYSLIPIDAEMIA
     Dates: end: 20170601
  3. EMTRICITABINE/TENOFOVIR DF [Suspect]
     Active Substance: EMTRICITABINE
     Indication: HIV INFECTION
     Route: 048
     Dates: end: 20170601
  4. METFORMIN [Suspect]
     Active Substance: METFORMIN HYDROCHLORIDE
     Indication: TYPE 2 DIABETES MELLITUS
     Route: 048
     Dates: end: 20170601
  5. ATAZANAVIR;RITONAVIR [Concomitant]
     Active Substance: ATAZANAVIR\RITONAVIR
     Indication: HIV INFECTION
     Route: 048
     Dates: end: 20170601

REACTIONS (3)
  - Lactic acidosis [Fatal]
  - Drug interaction [Unknown]
  - Renal impairment [Fatal]

NARRATIVE: CASE EVENT DATE: 20170525
